FAERS Safety Report 14758761 (Version 4)
Quarter: 2018Q2

REPORT INFORMATION
  Report Type: Spontaneous
  Country: BR (occurrence: BR)
  Receive Date: 20180413
  Receipt Date: 20180521
  Transmission Date: 20180711
  Serious: Yes (Hospitalization, Other)
  Sender: FDA-Public Use
  Company Number: BR-ALEXION PHARMACEUTICALS INC.-A201804293

PATIENT
  Sex: Male

DRUGS (4)
  1. SOLIRIS [Suspect]
     Active Substance: ECULIZUMAB
     Dosage: 600 MG, EVERY 14 DAYS
     Route: 042
     Dates: start: 20120927
  2. SOLIRIS [Suspect]
     Active Substance: ECULIZUMAB
     Dosage: 300 MG, EVERY21 DAYS
     Route: 042
     Dates: start: 20120927, end: 20161116
  3. SOLIRIS [Suspect]
     Active Substance: ECULIZUMAB
     Indication: ATYPICAL HAEMOLYTIC URAEMIC SYNDROME
     Dosage: 300 MG, SINGLE
     Route: 042
     Dates: start: 20120920, end: 20120920
  4. SOLIRIS [Suspect]
     Active Substance: ECULIZUMAB
     Dosage: 300 MG, SINGLE
     Route: 042
     Dates: start: 20120927, end: 20120927

REACTIONS (4)
  - Disease recurrence [Recovering/Resolving]
  - Malaise [Recovering/Resolving]
  - Renal failure [Recovering/Resolving]
  - Inappropriate schedule of drug administration [Recovered/Resolved]
